FAERS Safety Report 8438562-X (Version None)
Quarter: 2012Q2

REPORT INFORMATION
  Report Type: 
  Country: None (occurrence: None)
  Receive Date: 20120615
  Receipt Date: 20120604
  Transmission Date: 20120825
  Serious: Yes (Other)
  Sender: FDA-Public Use
  Company Number: NZ-BRISTOL-MYERS SQUIBB COMPANY-16663247

PATIENT
  Age: 35 Year
  Sex: Female

DRUGS (8)
  1. ARIPIPRAZOLE [Suspect]
     Indication: SCHIZOPHRENIA, PARANOID TYPE
  2. OLANZAPINE [Suspect]
  3. RISPERIDONE [Suspect]
  4. AMISULPRIDE [Suspect]
     Indication: SCHIZOPHRENIA, PARANOID TYPE
  5. CLOZAPINE [Suspect]
  6. FLUPENTHIXOL [Suspect]
  7. HALOPERIDOL [Suspect]
  8. QUETIAPINE [Suspect]

REACTIONS (2)
  - HYPERPROLACTINAEMIA [None]
  - PITUITARY TUMOUR BENIGN [None]
